FAERS Safety Report 6477403-7 (Version None)
Quarter: 2009Q4

REPORT INFORMATION
  Report Type: 
  Country: None (occurrence: None)
  Receive Date: 20091207
  Receipt Date: 20091104
  Transmission Date: 20100525
  Serious: Yes (Hospitalization, Other)
  Sender: FDA-Public Use
  Company Number: BE-SANOFI-AVENTIS-200817961GDDC

PATIENT
  Age: 61 Year
  Sex: Female
  Weight: 59 kg

DRUGS (5)
  1. DOCETAXEL [Suspect]
     Dosage: DOSE UNIT: 75 MG/M**2
     Route: 042
     Dates: start: 20080307, end: 20080307
  2. DOCETAXEL [Suspect]
     Route: 042
     Dates: start: 20080711, end: 20080711
  3. SUNITINIB [Suspect]
     Route: 048
     Dates: start: 20080308, end: 20080723
  4. EMCORETIC [Concomitant]
     Dosage: DOSE AS USED: UNK
  5. LEVOTHYROXINE SODIUM [Concomitant]
     Dosage: DOSE AS USED: UNK

REACTIONS (3)
  - CONDITION AGGRAVATED [None]
  - PLEURAL EFFUSION [None]
  - PNEUMOPERITONEUM [None]
